FAERS Safety Report 20062575 (Version 2)
Quarter: 2021Q4

REPORT INFORMATION
  Report Type: Spontaneous
  Country: NZ (occurrence: NZ)
  Receive Date: 20211112
  Receipt Date: 20211201
  Transmission Date: 20220303
  Serious: Yes (Hospitalization)
  Sender: FDA-Public Use
  Company Number: NZ-ELI_LILLY_AND_COMPANY-NZ202110007055

PATIENT
  Age: 46 Year
  Sex: Male
  Weight: 103 kg

DRUGS (1)
  1. OLANZAPINE PAMOATE [Suspect]
     Active Substance: OLANZAPINE PAMOATE
     Indication: Product used for unknown indication
     Dosage: 405 MG, OTHER (THREE WEEKLY)
     Route: 030

REACTIONS (12)
  - Hyperreflexia [Unknown]
  - Clonus [Unknown]
  - Feeling jittery [Unknown]
  - Restlessness [Unknown]
  - Heart rate increased [Unknown]
  - Post-injection delirium sedation syndrome [Unknown]
  - Sedation [Unknown]
  - Dizziness [Unknown]
  - Dysarthria [Recovered/Resolved]
  - Disorientation [Recovered/Resolved]
  - Akathisia [Unknown]
  - Confusional state [Unknown]

NARRATIVE: CASE EVENT DATE: 20211019
